FAERS Safety Report 6193371-X (Version None)
Quarter: 2009Q2

REPORT INFORMATION
  Report Type: 
  Country: None (occurrence: None)
  Receive Date: 20090514
  Receipt Date: 20090514
  Transmission Date: 20091009
  Serious: Yes (Other)
  Sender: FDA-Public Use
  Company Number: None

PATIENT
  Age: 57 Year
  Sex: Male
  Weight: 93 kg

DRUGS (1)
  1. MIRAPEX [Suspect]
     Indication: RESTLESS LEGS SYNDROME
     Dosage: 0.125 MG Q HS PO
     Route: 048
     Dates: start: 20080915, end: 20090415

REACTIONS (2)
  - COMPULSIVE SHOPPING [None]
  - ECONOMIC PROBLEM [None]
